FAERS Safety Report 16154836 (Version 2)
Quarter: 2019Q2

REPORT INFORMATION
  Report Type: Spontaneous
  Country: CL (occurrence: CL)
  Receive Date: 20190403
  Receipt Date: 20190521
  Transmission Date: 20190711
  Serious: Yes (Other)
  Sender: FDA-Public Use
  Company Number: CL-PFIZER INC-2019109028

PATIENT
  Age: 12 Year
  Sex: Male

DRUGS (1)
  1. GENOTROPIN [Suspect]
     Active Substance: SOMATROPIN
     Dosage: 4.1 IU, DAILY
     Route: 058
     Dates: start: 20190212, end: 20190311

REACTIONS (5)
  - Leukopenia [Unknown]
  - Hunger [Recovered/Resolved]
  - Tachycardia [Recovered/Resolved]
  - Injection site swelling [Unknown]
  - Injection site reaction [Unknown]

NARRATIVE: CASE EVENT DATE: 2019
